FAERS Safety Report 23589313 (Version 1)
Quarter: 2024Q1

REPORT INFORMATION
  Report Type: Report from Study
  Country: CO (occurrence: CO)
  Receive Date: 20240303
  Receipt Date: 20240303
  Transmission Date: 20240410
  Serious: Yes (Hospitalization)
  Sender: FDA-Public Use
  Company Number: CO-ABBVIE-5658496

PATIENT
  Age: 68 Year
  Sex: Female
  Weight: 46 kg

DRUGS (1)
  1. VENCLEXTA [Suspect]
     Active Substance: VENETOCLAX
     Indication: Chronic lymphocytic leukaemia
     Dosage: FORM STRENGTH: 100 MG
     Route: 048
     Dates: start: 20221121, end: 20230618

REACTIONS (4)
  - Pain [Recovering/Resolving]
  - Torticollis [Recovering/Resolving]
  - White blood cell count increased [Not Recovered/Not Resolved]
  - Muscle spasms [Recovering/Resolving]

NARRATIVE: CASE EVENT DATE: 20240225
